FAERS Safety Report 9730713 (Version 2)
Quarter: 2013Q4

REPORT INFORMATION
  Report Type: Spontaneous
  Country: US (occurrence: US)
  Receive Date: 20131202
  Receipt Date: 20131202
  Transmission Date: 20140711
  Serious: Yes (Other)
  Sender: FDA-Public Use
  Company Number: US-AMGEN-USASP2013080579

PATIENT
  Age: 69 Year
  Sex: Male
  Weight: 92.06 kg

DRUGS (22)
  1. ENBREL [Suspect]
     Indication: RHEUMATOID ARTHRITIS
     Dosage: 50 MG, QWK
     Route: 058
     Dates: start: 20130927
  2. COUMADIN                           /00014802/ [Concomitant]
     Dosage: 6 MG DAILY TO 6 MG DAILY FOR 4 DAYS A WEEK ALTERNATING WITH 7 MG DAILY ON 3 DAYS A WEEK
  3. ALLOPURINOL [Concomitant]
     Dosage: 300 MG, UNK
  4. ASPIRIN [Concomitant]
     Dosage: 81 MG, UNK
  5. ALBUTEROL                          /00139501/ [Concomitant]
     Dosage: 90 MUG, UNK
  6. GABAPENTIN [Concomitant]
     Dosage: 300 MG, UNK
  7. PLAQUENIL                          /00072602/ [Concomitant]
     Dosage: 200 MG, UNK
  8. SANCTURA [Concomitant]
     Dosage: 60 MG, UNK
  9. IPRATROPIUM/ALBUTEROL [Concomitant]
     Dosage: UNK
  10. LISINOPRIL [Concomitant]
     Dosage: 10 MG, UNK
  11. METOPROLOL [Concomitant]
     Dosage: 50 MG, UNK
  12. OMEPRAZOLE [Concomitant]
     Dosage: 20.6 MG, UNK
  13. PHAZYME                            /06269601/ [Concomitant]
     Dosage: 180 MG, UNK
  14. PREDNISONE [Concomitant]
     Dosage: 5 MG, UNK
  15. PROAIR HFA [Concomitant]
     Dosage: UNK
  16. TAMSULOSIN [Concomitant]
     Dosage: 0.4 MG, UNK
  17. TRAZODONE [Concomitant]
     Dosage: 100 MG, UNK
  18. WARFARIN [Concomitant]
     Dosage: 3 MG, UNK
  19. CITRACAL + D                       /01438101/ [Concomitant]
     Dosage: UNK
  20. VITAMIN B12                        /00056201/ [Concomitant]
     Dosage: 2000 MUG, UNK
  21. VITAMIN D                          /00107901/ [Concomitant]
     Dosage: 1000 UNIT, UNK
  22. VITAMIN C                          /00008001/ [Concomitant]
     Dosage: 500 MG, UNK

REACTIONS (3)
  - Tooth abscess [Unknown]
  - Arthralgia [Unknown]
  - Pain in extremity [Unknown]
